FAERS Safety Report 14309593 (Version 1)
Quarter: 2017Q4

REPORT INFORMATION
  Report Type: Spontaneous
  Country: US (occurrence: US)
  Receive Date: 20171220
  Receipt Date: 20171220
  Transmission Date: 20180321
  Serious: Yes (Other)
  Sender: FDA-Public Use
  Company Number: US-TEIKOKU PHARMA USA-TPU2017-00786

PATIENT
  Sex: Female
  Weight: 77.18 kg

DRUGS (1)
  1. LIDOCAINE PATCH [Suspect]
     Active Substance: LIDOCAINE
     Indication: BACK PAIN
     Dosage: ONE PATCH APPLIED TO UPPER BACK OR LOWER BACK DEPENDING ON WHERE PAIN IS
     Route: 061

REACTIONS (2)
  - Drug ineffective [Unknown]
  - Spinal operation [Unknown]
